FAERS Safety Report 5465302-9 (Version None)
Quarter: 2007Q3

REPORT INFORMATION
  Report Type: 
  Country: None (occurrence: None)
  Receive Date: 20070924
  Receipt Date: 20070919
  Transmission Date: 20080115
  Serious: Yes (Death, Hospitalization)
  Sender: FDA-Public Use
  Company Number: DK-BAYER-200715484GDS

PATIENT
  Age: 60 Year
  Sex: Male
  Weight: 82 kg

DRUGS (17)
  1. SORAFENIB [Suspect]
     Indication: RENAL CELL CARCINOMA STAGE UNSPECIFIED
     Dosage: TOTAL DAILY DOSE: 800 MG
     Route: 048
     Dates: start: 20060322, end: 20060619
  2. SORAFENIB [Suspect]
     Dosage: TOTAL DAILY DOSE: 400 MG
     Route: 048
     Dates: start: 20060620, end: 20070911
  3. CALCIUM W/MAGNESIUM [Concomitant]
     Indication: DRUG USE FOR UNKNOWN INDICATION
     Dates: start: 20051101, end: 20070101
  4. ANDOLEX [Concomitant]
     Indication: DRY MOUTH
     Route: 065
     Dates: start: 20060406, end: 20070101
  5. MOISTURIZING CREME [Concomitant]
     Indication: DRY SKIN
     Route: 065
     Dates: start: 20060406, end: 20070101
  6. PREDNISOLONE [Concomitant]
     Indication: FATIGUE
     Route: 065
     Dates: start: 20070901, end: 20070918
  7. PREDNISOLONE [Concomitant]
     Route: 065
     Dates: start: 20070314, end: 20070907
  8. PAMOL [Concomitant]
     Indication: PAIN IN EXTREMITY
     Route: 065
     Dates: start: 20070101, end: 20070918
  9. PENICILLIN G [Concomitant]
     Indication: PHARYNGOLARYNGEAL PAIN
     Route: 065
     Dates: start: 20070501, end: 20070501
  10. BLOOD TRANSFUSION (RED BLOOD CELLS) [Concomitant]
     Indication: ANAEMIA
     Route: 042
     Dates: start: 20070610, end: 20070611
  11. BLOOD TRANSFUSION (RED BLOOD CELLS) [Concomitant]
     Route: 042
     Dates: start: 20070801, end: 20070916
  12. NEXIUM [Concomitant]
     Indication: DYSPEPSIA
     Route: 065
     Dates: start: 20070601, end: 20070918
  13. NEXIUM [Concomitant]
     Route: 065
     Dates: start: 20070611, end: 20070601
  14. SOLU-MEDROL [Concomitant]
     Indication: NAUSEA
     Route: 065
     Dates: start: 20070911, end: 20070912
  15. PRIMPERAN [Concomitant]
     Indication: NAUSEA
     Route: 065
     Dates: start: 20070911, end: 20070912
  16. LOSEC [Concomitant]
     Indication: HAEMATEMESIS
     Route: 065
     Dates: start: 20070915, end: 20070918
  17. MORFIN [Concomitant]
     Indication: TUMOUR PAIN
     Route: 065
     Dates: start: 20070915, end: 20070918

REACTIONS (2)
  - PNEUMONIA [None]
  - PYREXIA [None]
